FAERS Safety Report 10971229 (Version 1)
Quarter: 2015Q1

REPORT INFORMATION
  Report Type: Spontaneous
  Country: FR (occurrence: None)
  Receive Date: 20150326
  Receipt Date: 20150326
  Transmission Date: 20150721
  Serious: Yes (Other)
  Sender: FDA-Public Use
  Company Number: 2015101822

PATIENT
  Age: 63 Year
  Sex: Female

DRUGS (4)
  1. FRAGMINE (DALTEPARIN SODIUM) SOLUTION FOR INJECTION [Suspect]
     Active Substance: DALTEPARIN SODIUM
     Route: 058
     Dates: start: 20150214, end: 20150224
  2. METFORMIN HCL [Suspect]
     Active Substance: METFORMIN HYDROCHLORIDE
     Route: 048
     Dates: end: 20150224
  3. PRAVASTATIN SODIUM. [Concomitant]
     Active Substance: PRAVASTATIN SODIUM
  4. CLAMOXYL [Suspect]
     Active Substance: AMOXICILLIN\CLAVULANIC ACID
     Route: 042
     Dates: start: 20150221, end: 20150224

REACTIONS (1)
  - Renal failure [None]

NARRATIVE: CASE EVENT DATE: 20150224
